FAERS Safety Report 6923782-3 (Version None)
Quarter: 2010Q3

REPORT INFORMATION
  Report Type: 
  Country: None (occurrence: None)
  Receive Date: 20100813
  Receipt Date: 20100803
  Transmission Date: 20110219
  Serious: Yes (Hospitalization)
  Sender: FDA-Public Use
  Company Number: US-ELI_LILLY_AND_COMPANY-US201008001231

PATIENT
  Sex: Male
  Weight: 86.1 kg

DRUGS (8)
  1. CYMBALTA [Suspect]
     Dosage: 60 MG, DAILY (1/D)
  2. CETUXIMAB [Concomitant]
     Indication: NON-SMALL CELL LUNG CANCER
     Dates: start: 20100324, end: 20100721
  3. PACLITAXEL [Concomitant]
     Indication: NON-SMALL CELL LUNG CANCER
     Dates: start: 20100324, end: 20100707
  4. CARBOPLATIN [Concomitant]
     Indication: NON-SMALL CELL LUNG CANCER
     Dates: start: 20100324, end: 20100707
  5. LOVENOX [Concomitant]
     Dosage: 60 MG, OTHER
  6. LORCET-HD [Concomitant]
     Dosage: 7.5 MG, EVERY 6 HRS
  7. KLONOPIN [Concomitant]
     Dosage: 1 MG, DAILY (1/D)
  8. DOXYCYCLINE [Concomitant]
     Dosage: 100 MG, 2/D

REACTIONS (1)
  - CALCULUS URINARY [None]
